FAERS Safety Report 7152497-4 (Version None)
Quarter: 2010Q4

REPORT INFORMATION
  Report Type: 
  Country: None (occurrence: None)
  Receive Date: 20101213
  Receipt Date: 20101202
  Transmission Date: 20110411
  Serious: No
  Sender: FDA-Public Use
  Company Number: US-PFIZER INC-2010163682

PATIENT
  Sex: Male

DRUGS (2)
  1. LYRICA [Suspect]
     Indication: POST HERPETIC NEURALGIA
     Dosage: 75 MG, UNK
  2. LYRICA [Suspect]
     Dosage: 50 MG, UNK

REACTIONS (2)
  - DRUG INTOLERANCE [None]
  - SOMNOLENCE [None]
